FAERS Safety Report 14583997 (Version 1)
Quarter: 2018Q1

REPORT INFORMATION
  Report Type: Spontaneous
  Country: PL (occurrence: PL)
  Receive Date: 20180228
  Receipt Date: 20180228
  Transmission Date: 20180509
  Serious: Yes (Other)
  Sender: FDA-Public Use
  Company Number: PHHY2018PL025902

PATIENT
  Age: 74 Year
  Sex: Male

DRUGS (2)
  1. NILOTINIB [Suspect]
     Active Substance: NILOTINIB
     Indication: CHRONIC MYELOID LEUKAEMIA
     Dosage: 800 MG, UNK
     Route: 065
     Dates: start: 201305
  2. NILOTINIB [Suspect]
     Active Substance: NILOTINIB
     Dosage: 600-800 MG,QD
     Route: 065

REACTIONS (5)
  - Plasma cell myeloma [Unknown]
  - Second primary malignancy [Unknown]
  - Anaemia [Unknown]
  - Paresis [Unknown]
  - Ileus paralytic [Unknown]

NARRATIVE: CASE EVENT DATE: 201502
